FAERS Safety Report 20937988 (Version 2)
Quarter: 2022Q2

REPORT INFORMATION
  Report Type: Other
  Country: US (occurrence: US)
  Receive Date: 20220609
  Receipt Date: 20220627
  Transmission Date: 20220720
  Serious: No
  Sender: FDA-Public Use
  Company Number: US-Covis Pharma GmbH-2022COV01658

PATIENT
  Age: 40 Year
  Sex: Female

DRUGS (2)
  1. MAKENA [Suspect]
     Active Substance: HYDROXYPROGESTERONE CAPROATE
     Indication: Product used for unknown indication
     Route: 058
     Dates: start: 20220513
  2. MAKENA [Suspect]
     Active Substance: HYDROXYPROGESTERONE CAPROATE
     Indication: Premature delivery

REACTIONS (3)
  - Injection site erythema [Unknown]
  - Injection site pruritus [Unknown]
  - Product administration error [Unknown]

NARRATIVE: CASE EVENT DATE: 20220513
